FAERS Safety Report 13940252 (Version 2)
Quarter: 2017Q4

REPORT INFORMATION
  Report Type: Spontaneous
  Country: JP (occurrence: JP)
  Receive Date: 20170906
  Receipt Date: 20171020
  Transmission Date: 20180320
  Serious: Yes (Other)
  Sender: FDA-Public Use
  Company Number: JP-TEVA-2017-JP-002867J

PATIENT
  Age: 75 Year
  Sex: Male

DRUGS (5)
  1. TRAZENTA [Concomitant]
     Active Substance: LINAGLIPTIN
     Indication: DIABETES MELLITUS
     Route: 065
  2. EURODIN 1MG. TABLETS [Suspect]
     Active Substance: ESTAZOLAM
     Indication: INSOMNIA
     Dosage: 1 MILLIGRAM DAILY;
     Route: 048
     Dates: start: 20170410, end: 20170426
  3. EURODIN 1MG. TABLETS [Suspect]
     Active Substance: ESTAZOLAM
     Dosage: 2 MILLIGRAM DAILY;
     Route: 048
     Dates: start: 20170427, end: 20170823
  4. EURODIN 1MG. TABLETS [Suspect]
     Active Substance: ESTAZOLAM
     Dosage: 1 MILLIGRAM DAILY;
     Route: 048
     Dates: start: 20170824
  5. MYSLEE [Concomitant]
     Active Substance: ZOLPIDEM TARTRATE
     Indication: INSOMNIA
     Dosage: 10 MILLIGRAM DAILY;
     Route: 048
     Dates: start: 20170412

REACTIONS (4)
  - Fall [Recovering/Resolving]
  - Hangover [Recovering/Resolving]
  - Altered state of consciousness [Recovering/Resolving]
  - Hypersomnia [Recovering/Resolving]

NARRATIVE: CASE EVENT DATE: 20170824
